FAERS Safety Report 10075361 (Version 2)
Quarter: 2014Q3

REPORT INFORMATION
  Report Type: Spontaneous
  Country: RO (occurrence: RO)
  Receive Date: 20140414
  Receipt Date: 20140701
  Transmission Date: 20150326
  Serious: Yes (Death)
  Sender: FDA-Public Use
  Company Number: RO-ROCHE-1382523

PATIENT
  Age: 71 Year
  Sex: Female
  Weight: 70 kg

DRUGS (12)
  1. MABTHERA [Suspect]
     Active Substance: RITUXIMAB
     Indication: RHEUMATOID ARTHRITIS
     Route: 042
     Dates: start: 20090201, end: 20140401
  2. METHOTREXATE [Concomitant]
     Active Substance: METHOTREXATE
     Indication: RHEUMATOID ARTHRITIS
     Route: 048
     Dates: start: 20030601, end: 20140405
  3. BETASERC [Concomitant]
     Active Substance: BETAHISTINE
     Indication: VERTIGO
     Route: 048
     Dates: end: 20140405
  4. TERTENSIF [Concomitant]
     Indication: MYOCARDIAL ISCHAEMIA
  5. BLOXAN [Concomitant]
     Indication: HYPERTENSION
     Route: 048
     Dates: end: 20140405
  6. BLOXAN [Concomitant]
     Indication: MYOCARDIAL ISCHAEMIA
  7. NORVASC [Concomitant]
     Active Substance: AMLODIPINE BESYLATE
     Indication: HYPERTENSION
     Route: 048
     Dates: end: 20140405
  8. ASPENTER [Concomitant]
     Active Substance: ASPIRIN
     Indication: HYPERTENSION
     Route: 048
     Dates: end: 20140405
  9. ALPHA D3 [Concomitant]
     Indication: OSTEOPOROSIS
     Route: 048
     Dates: end: 20140405
  10. TERTENSIF [Concomitant]
     Indication: HYPERTENSION
     Route: 048
     Dates: end: 20140405
  11. ASPENTER [Concomitant]
     Active Substance: ASPIRIN
     Indication: MYOCARDIAL ISCHAEMIA
  12. NORVASC [Concomitant]
     Active Substance: AMLODIPINE BESYLATE
     Indication: MYOCARDIAL ISCHAEMIA

REACTIONS (1)
  - Sudden death [Fatal]

NARRATIVE: CASE EVENT DATE: 20140405
